FAERS Safety Report 5483215-3 (Version None)
Quarter: 2007Q4

REPORT INFORMATION
  Report Type: 
  Country: None (occurrence: None)
  Receive Date: 20071009
  Receipt Date: 20071003
  Transmission Date: 20080405
  Serious: Yes (Death, Life-Threatening, Other)
  Sender: FDA-Public Use
  Company Number: 2006SP008500

PATIENT
  Age: 6 Year
  Sex: Male
  Weight: 16 kg

DRUGS (11)
  1. TEMODAL [Suspect]
     Indication: BRAIN NEOPLASM
     Dosage: 75 MG/M2; QD; PO
     Route: 048
     Dates: start: 20060920, end: 20061023
  2. VEPESID [Suspect]
     Indication: DRUG USE FOR UNKNOWN INDICATION
     Dosage: PO
     Route: 048
     Dates: start: 20061007, end: 20061026
  3. BAKTAR [Concomitant]
  4. LASTET S [Concomitant]
  5. NASEA-OD [Concomitant]
  6. PRIMPERAN [Concomitant]
  7. DECADRON [Concomitant]
  8. MANNITOL [Concomitant]
  9. BUPRENORPHINE HCL [Concomitant]
  10. PRODIF [Concomitant]
  11. GAMMAGARD [Concomitant]

REACTIONS (11)
  - BLOOD UREA INCREASED [None]
  - BONE MARROW FAILURE [None]
  - HYPERNATRAEMIA [None]
  - INFECTION [None]
  - LYMPHOCYTE COUNT DECREASED [None]
  - NEOPLASM PROGRESSION [None]
  - NEUTROPHIL COUNT DECREASED [None]
  - PLATELET COUNT DECREASED [None]
  - PNEUMONIA BACTERIAL [None]
  - RESPIRATORY FAILURE [None]
  - WHITE BLOOD CELL COUNT DECREASED [None]
